FAERS Safety Report 9696147 (Version 1)
Quarter: 2013Q4

REPORT INFORMATION
  Report Type: Spontaneous
  Country: FR (occurrence: FR)
  Receive Date: 20131119
  Receipt Date: 20131119
  Transmission Date: 20140711
  Serious: Yes (Hospitalization)
  Sender: FDA-Public Use
  Company Number: FR-JNJFOC-20131107437

PATIENT
  Age: 29 Year
  Sex: Male

DRUGS (9)
  1. HALDOL DECANOAS [Suspect]
     Indication: SCHIZOPHRENIA, PARANOID TYPE
     Dosage: 4 AMPOULES EVERY 4 WEEKS
     Route: 030
  2. ABILIFY [Suspect]
     Indication: SCHIZOPHRENIA, PARANOID TYPE
     Route: 048
     Dates: end: 20121204
  3. VALIUM [Suspect]
     Indication: SCHIZOPHRENIA, PARANOID TYPE
     Dosage: 10 DROPS IN THE MORNING AND AT NOON AND 20 DROPS AT BEDTIME
     Route: 048
  4. LEPTICUR [Suspect]
     Indication: SCHIZOPHRENIA, PARANOID TYPE
     Route: 048
  5. DEPAKOTE [Suspect]
     Indication: PRODUCT USED FOR UNKNOWN INDICATION
     Route: 048
     Dates: start: 20121204
  6. TERCIAN [Concomitant]
     Indication: SCHIZOPHRENIA, PARANOID TYPE
     Route: 065
  7. TERCIAN [Concomitant]
     Indication: SCHIZOPHRENIA, PARANOID TYPE
     Route: 065
     Dates: end: 20121124
  8. TERCIAN [Concomitant]
     Indication: AGITATION
     Route: 065
  9. TERCIAN [Concomitant]
     Indication: AGITATION
     Route: 065
     Dates: end: 20121124

REACTIONS (2)
  - Pulmonary embolism [Recovered/Resolved]
  - Deep vein thrombosis [Recovered/Resolved]
